FAERS Safety Report 6191018-X (Version None)
Quarter: 2009Q2

REPORT INFORMATION
  Report Type: 
  Country: None (occurrence: None)
  Receive Date: 20090513
  Receipt Date: 20090501
  Transmission Date: 20091009
  Serious: Yes (Other)
  Sender: FDA-Public Use
  Company Number: OPER20090098

PATIENT
  Age: 55 Year
  Sex: Female
  Weight: 58.0604 kg

DRUGS (4)
  1. OPANA ER [Suspect]
     Indication: PAIN
     Dosage: 20 MG, BID, PER ORAL
     Route: 048
     Dates: start: 20061201
  2. OPANA ER [Suspect]
     Indication: PAIN
     Dosage: 10 MG, QAM, PER ORAL
     Route: 048
     Dates: start: 20061201
  3. LYRICA [Concomitant]
  4. SKELAXIN [Concomitant]

REACTIONS (1)
  - COLITIS ISCHAEMIC [None]
